FAERS Safety Report 5317254-X (Version None)
Quarter: 2007Q2

REPORT INFORMATION
  Report Type: 
  Country: None (occurrence: None)
  Receive Date: 20070504
  Receipt Date: 20070427
  Transmission Date: 20071010
  Serious: Yes (Hospitalization)
  Sender: FDA-Public Use
  Company Number: US-ROXANE LABORATORIES, INC-2007-BP-05884RO

PATIENT
  Age: 35 Year
  Sex: Female

DRUGS (2)
  1. PREDNISONE TAB [Suspect]
     Indication: COLITIS ULCERATIVE
     Route: 048
  2. ACTH [Concomitant]
     Route: 030

REACTIONS (4)
  - ABDOMINAL PAIN [None]
  - HYPERHIDROSIS [None]
  - PYREXIA [None]
  - STEROID WITHDRAWAL SYNDROME [None]
